FAERS Safety Report 9169602 (Version 2)
Quarter: 2013Q3

REPORT INFORMATION
  Report Type: Report from Study
  Country: BR (occurrence: BR)
  Receive Date: 20130318
  Receipt Date: 20130829
  Transmission Date: 20140515
  Serious: Yes (Other)
  Sender: FDA-Public Use
  Company Number: BR-ELI_LILLY_AND_COMPANY-BR201301006493

PATIENT
  Age: 77 Year
  Sex: Female
  Weight: 42 kg

DRUGS (16)
  1. TERIPARATIDE [Suspect]
     Indication: OSTEOPOROSIS
     Dosage: 20 UG, 5/W
     Route: 058
     Dates: start: 20121017, end: 20130226
  2. TERIPARATIDE [Suspect]
     Dosage: 20 UG, QD
     Route: 058
     Dates: start: 20130227
  3. PREDNISONE [Concomitant]
     Indication: CUTANEOUS VASCULITIS
     Dosage: 5 MG, QD
     Route: 065
  4. FOLIC ACID [Concomitant]
     Indication: PAIN
     Dosage: UNK, UNKNOWN
     Route: 065
  5. SODIUM CARBONATE [Concomitant]
     Dosage: 500 MG, UNKNOWN
     Route: 065
  6. VITAMIN D3 [Concomitant]
     Dosage: 1000 IU, UNKNOWN
     Route: 065
  7. METOTREXATO [Concomitant]
     Dosage: 5 DF, 4/W
     Route: 065
  8. VASTAREL [Concomitant]
     Dosage: UNK, UNKNOWN
     Route: 065
     Dates: start: 2012
  9. SIMVASTATINE [Concomitant]
     Indication: BLOOD CHOLESTEROL
     Dosage: 20 MG, QD
     Route: 065
  10. TICLOPIDINA [Concomitant]
     Dosage: 25 MG, UNKNOWN
     Route: 065
     Dates: start: 2012
  11. SUSTRATE [Concomitant]
     Indication: ARRHYTHMIA
     Dosage: 10 MG, BID
     Route: 065
  12. SUSTRATE [Concomitant]
     Indication: ANGINA PECTORIS
  13. PARACETAMOL [Concomitant]
     Indication: PAIN
     Dosage: 500 MG, QD
  14. PARACETAMOL [Concomitant]
     Indication: HEADACHE
     Dosage: 750 MG, QD
     Route: 065
  15. BROMAZEPAN [Concomitant]
     Indication: SLEEP DISORDER
     Dosage: 5 MG, QD
  16. BROMAZEPAN [Concomitant]
     Indication: DEPRESSION

REACTIONS (9)
  - Haemoptysis [Not Recovered/Not Resolved]
  - Pneumonia [Recovered/Resolved]
  - Inappropriate schedule of drug administration [Recovered/Resolved]
  - Back pain [Not Recovered/Not Resolved]
  - Dizziness [Not Recovered/Not Resolved]
  - Somnolence [Recovered/Resolved]
  - Asthenia [Recovered/Resolved]
  - Influenza [Unknown]
  - Neuropathy peripheral [Unknown]
